FAERS Safety Report 6452674-1 (Version None)
Quarter: 2009Q4

REPORT INFORMATION
  Report Type: 
  Country: None (occurrence: None)
  Receive Date: 20091124
  Receipt Date: 20091120
  Transmission Date: 20100525
  Serious: Yes (Death)
  Sender: FDA-Public Use
  Company Number: US-ELI_LILLY_AND_COMPANY-US200911005343

PATIENT

DRUGS (2)
  1. HUMULIN 70/30 [Suspect]
     Dosage: 25 U, EACH MORNING
     Route: 064
     Dates: end: 20090501
  2. HUMULIN 70/30 [Suspect]
     Dosage: 35 U, EACH EVENING
     Route: 064
     Dates: end: 20090501

REACTIONS (2)
  - DRUG EXPOSURE DURING PREGNANCY [None]
  - INTRA-UTERINE DEATH [None]
